FAERS Safety Report 8982026 (Version 1)
Quarter: 2012Q4

REPORT INFORMATION
  Report Type: 
  Country: US (occurrence: US)
  Receive Date: 20121212
  Receipt Date: 20121212
  Transmission Date: 20130627
  Serious: Yes (Death)
  Sender: FDA-Public Use
  Company Number: US-ASTELLAS-1105109

PATIENT
  Age: 71 Year
  Sex: Female

DRUGS (1)
  1. TARCEVA [Suspect]
     Indication: LUNG NEOPLASM MALIGNANT
     Route: 048
     Dates: start: 20050114, end: 20090727

REACTIONS (8)
  - Death [Fatal]
  - Dry mouth [Unknown]
  - Dysgeusia [Unknown]
  - Skin ulcer [Unknown]
  - Diarrhoea [Unknown]
  - Decreased appetite [Unknown]
  - Dry skin [Unknown]
  - Fungal skin infection [Unknown]
